FAERS Safety Report 18545077 (Version 1)
Quarter: 2020Q4

REPORT INFORMATION
  Report Type: Spontaneous
  Country: JP (occurrence: JP)
  Receive Date: 20201125
  Receipt Date: 20201125
  Transmission Date: 20210114
  Serious: Yes (Hospitalization, Other)
  Sender: FDA-Public Use
  Company Number: JP-MYLANLABS-2020M1097308

PATIENT
  Age: 74 Year
  Sex: Male

DRUGS (5)
  1. PACLITAXEL. [Suspect]
     Active Substance: PACLITAXEL
     Indication: THYMIC CANCER METASTATIC
     Dosage: 210 MILLIGRAM/SQ. METER, RECEIVED ONE COURSE
     Route: 065
     Dates: start: 201405
  2. CARBOPLATIN. [Suspect]
     Active Substance: CARBOPLATIN
     Dosage: 350 MILLIGRAM, 350 MG (AUC = 4) RECEIVED 6 COURSES
     Route: 065
     Dates: start: 201407, end: 201412
  3. CARBOPLATIN. [Suspect]
     Active Substance: CARBOPLATIN
     Indication: THYMIC CANCER METASTATIC
     Dosage: 450 MILLIGRAM, AUC=5. ONE COURSE
     Route: 065
     Dates: start: 201405
  4. GIMERACIL;OTERACIL;TEGAFUR [Suspect]
     Active Substance: GIMERACIL\OTERACIL\TEGAFUR
     Indication: THYMIC CANCER METASTATIC
     Dosage: A TOTAL OF 42COURSES (4280MG OF TOTAL DOSE)
     Route: 065
     Dates: start: 201501, end: 201802
  5. AMRUBICIN [Suspect]
     Active Substance: AMRUBICIN
     Indication: THYMIC CANCER METASTATIC
     Dosage: 35 MILLIGRAM/SQ. METER, 35 MG/ME2 X 3. RECEIVED 6 COURSES
     Route: 065
     Dates: start: 201407, end: 201412

REACTIONS (3)
  - Differentiation syndrome [Recovered/Resolved]
  - Acute promyelocytic leukaemia [Recovered/Resolved]
  - Treatment failure [Unknown]

NARRATIVE: CASE EVENT DATE: 2014
